FAERS Safety Report 17828760 (Version 1)
Quarter: 2020Q2

REPORT INFORMATION
  Report Type: Spontaneous
  Country: US (occurrence: US)
  Receive Date: 20200527
  Receipt Date: 20200527
  Transmission Date: 20200714
  Serious: Yes (Life-Threatening)
  Sender: FDA-Public Use
  Company Number: US-TEVA-2020-US-1240342

PATIENT
  Age: 69 Year
  Sex: Female
  Weight: 81 kg

DRUGS (2)
  1. QVAR REDIHALER [Suspect]
     Active Substance: BECLOMETHASONE DIPROPIONATE
     Indication: ASTHMA
     Route: 065
  2. QVAR [Concomitant]
     Active Substance: BECLOMETHASONE DIPROPIONATE

REACTIONS (3)
  - Device malfunction [Unknown]
  - Drug dose omission by device [Unknown]
  - Malaise [Unknown]

NARRATIVE: CASE EVENT DATE: 20190104
